FAERS Safety Report 7315930-0 (Version None)
Quarter: 2011Q1

REPORT INFORMATION
  Report Type: 
  Country: None (occurrence: None)
  Receive Date: 20110225
  Receipt Date: 20110211
  Transmission Date: 20110831
  Serious: Yes (Life-Threatening)
  Sender: FDA-Public Use
  Company Number: GB-BAUSCH-2011BL001014

PATIENT
  Age: 33 Year
  Sex: Female

DRUGS (3)
  1. METHOTREXATE [Suspect]
     Indication: POLYMYOSITIS
     Dates: start: 20090101
  2. PREDNISOLONE [Suspect]
     Indication: POLYMYOSITIS
     Dates: start: 20090101
  3. MYCOPHENOLATE MOFETIL [Suspect]
     Indication: POLYMYOSITIS
     Dates: start: 20090101

REACTIONS (5)
  - MYOPATHY [None]
  - MYOPERICARDITIS [None]
  - INTERSTITIAL LUNG DISEASE [None]
  - ATRIOVENTRICULAR BLOCK COMPLETE [None]
  - MYOSITIS [None]
